FAERS Safety Report 9054962 (Version 1)
Quarter: 2013Q1

REPORT INFORMATION
  Report Type: Spontaneous
  Country: FR (occurrence: FR)
  Receive Date: 20130208
  Receipt Date: 20130208
  Transmission Date: 20140127
  Serious: Yes (Other)
  Sender: FDA-Public Use
  Company Number: FR-TEVA-383670ISR

PATIENT
  Age: 15 Year
  Sex: Male

DRUGS (5)
  1. METHOTREXATE [Suspect]
     Indication: ACUTE LYMPHOCYTIC LEUKAEMIA
     Route: 037
  2. METHOTREXATE [Interacting]
     Indication: ACUTE LYMPHOCYTIC LEUKAEMIA
     Dosage: HIGH-DOSE INFUSION OF 5 G/M2/24 HOURS
     Route: 041
  3. LEVETIRACETAM [Interacting]
     Indication: CONVULSION
     Dosage: 15 MG/KG DAILY; 15 MG/KG/DAY IN 2 DIVIDED DOSES
     Route: 048
  4. ONDANSETRON [Concomitant]
     Indication: VOMITING
     Route: 065
  5. METOPIMAZINE [Concomitant]
     Indication: VOMITING
     Route: 065

REACTIONS (6)
  - Drug interaction [Recovering/Resolving]
  - Toxicity to various agents [Recovering/Resolving]
  - Renal failure [Recovered/Resolved]
  - Hypertension [Unknown]
  - Convulsion [Unknown]
  - Vomiting [Unknown]
